FAERS Safety Report 24037402 (Version 2)
Quarter: 2024Q3

REPORT INFORMATION
  Report Type: Spontaneous
  Country: US (occurrence: US)
  Receive Date: 20240702
  Receipt Date: 20240709
  Transmission Date: 20241017
  Serious: Yes (Other)
  Sender: BRISTOL MYERS SQUIBB
  Company Number: US-BRISTOL-MYERS SQUIBB COMPANY-2024-102011

PATIENT
  Age: 57 Year
  Sex: Male
  Weight: 89.81 kg

DRUGS (5)
  1. OPDIVO [Suspect]
     Active Substance: NIVOLUMAB
     Indication: Gastric cancer
     Dates: start: 20240603
  2. FLUOROURACIL\LEUCOVORIN CALCIUM\OXALIPLATIN [Suspect]
     Active Substance: FLUOROURACIL\LEUCOVORIN CALCIUM\OXALIPLATIN
     Indication: Gastric cancer
  3. ALBUTEROL [Concomitant]
     Active Substance: ALBUTEROL
  4. METOPROLOL [Concomitant]
     Active Substance: METOPROLOL
  5. VITAMINS [Concomitant]
     Active Substance: VITAMINS

REACTIONS (7)
  - Flushing [Unknown]
  - Dyspnoea [Unknown]
  - Back pain [Unknown]
  - Body temperature abnormal [Unknown]
  - Erythema [Unknown]
  - Urticaria [Unknown]
  - Skin discolouration [Unknown]

NARRATIVE: CASE EVENT DATE: 20240624
